FAERS Safety Report 9437104 (Version 5)
Quarter: 2013Q4

REPORT INFORMATION
  Report Type: Spontaneous
  Country: JP (occurrence: JP)
  Receive Date: 20130802
  Receipt Date: 20131203
  Transmission Date: 20140711
  Serious: Yes (Hospitalization, Other)
  Sender: FDA-Public Use
  Company Number: JP-MPIJNJ-2013-05711

PATIENT
  Sex: 0

DRUGS (13)
  1. VELCADE [Suspect]
     Indication: PLASMA CELL MYELOMA
     Dosage: 1.3 MG/M2, UNK
     Route: 042
     Dates: start: 20130704, end: 20130714
  2. LY2127399 [Suspect]
     Indication: PLASMA CELL MYELOMA
     Dosage: 300 MG, UNK
     Route: 042
     Dates: start: 20130704, end: 20130704
  3. DEXAMETHASONE [Suspect]
     Indication: PLASMA CELL MYELOMA
     Dosage: 20 MG, QD
     Route: 048
     Dates: start: 20130704, end: 20130715
  4. CLARITHROMYCIN [Concomitant]
     Indication: INFECTION PROPHYLAXIS
     Dosage: QD
     Route: 048
     Dates: start: 20121025
  5. ALLOPURINOL [Concomitant]
     Indication: PROPHYLAXIS
     Dosage: 100 MG, UNK
     Route: 048
     Dates: start: 20130702
  6. ACICLOVIR [Concomitant]
     Indication: ANTIVIRAL PROPHYLAXIS
     Dosage: 200 MG, UNK
     Route: 048
     Dates: start: 20130701
  7. MAGNESIUM [Concomitant]
     Indication: CONSTIPATION
     Dosage: 250 MG, UNK
     Route: 048
     Dates: start: 20130714
  8. CARBOCISTEINE [Concomitant]
     Indication: INFECTION PROPHYLAXIS
     Dosage: 250 MG, UNK
     Route: 048
     Dates: start: 20120712
  9. ITRACONAZOLE [Concomitant]
     Indication: INFECTION PROPHYLAXIS
     Dosage: 200 MG, UNK
     Route: 048
     Dates: start: 20130702
  10. NEXIUM                             /01479302/ [Concomitant]
     Indication: PROPHYLAXIS
     Dosage: 10 MG, UNK
     Route: 048
     Dates: start: 20121126
  11. SULFAMETHOXAZOLE AND TRIMETHOPRIM [Concomitant]
     Indication: INFECTION PROPHYLAXIS
     Dosage: 2 DF, 1/WEEK
     Route: 048
     Dates: start: 20130620
  12. ALENDRONATE SODIUM [Concomitant]
     Indication: BONE LESION
     Dosage: 35 MG, 1/WEEK
     Route: 048
     Dates: start: 20130620
  13. CALCIUM POLYSTYRENE SULFONATE [Concomitant]
     Indication: HYPERKALAEMIA
     Dosage: 5 G, QD
     Route: 048
     Dates: start: 20130714, end: 20130719

REACTIONS (9)
  - Loss of consciousness [Not Recovered/Not Resolved]
  - Carotid artery disease [Unknown]
  - Dizziness [Unknown]
  - Dizziness [Unknown]
  - Muscular weakness [Unknown]
  - Peripheral sensory neuropathy [Recovering/Resolving]
  - Blood pressure decreased [Unknown]
  - Syncope [Recovered/Resolved]
  - Diarrhoea [Recovered/Resolved]
